FAERS Safety Report 10047795 (Version 1)
Quarter: 2014Q1

REPORT INFORMATION
  Report Type: Report from Study
  Country: US (occurrence: US)
  Receive Date: 20140331
  Receipt Date: 20140331
  Transmission Date: 20141002
  Serious: Yes (Other)
  Sender: FDA-Public Use
  Company Number: US-ALEXION-A201102136

PATIENT
  Sex: Female

DRUGS (1)
  1. SOLIRIS [Suspect]
     Indication: PAROXYSMAL NOCTURNAL HAEMOGLOBINURIA
     Route: 042

REACTIONS (6)
  - Biopsy bone marrow [Unknown]
  - Chromaturia [Unknown]
  - Stress [Unknown]
  - Headache [Unknown]
  - Hot flush [Unknown]
  - Haemoglobin decreased [Unknown]
